FAERS Safety Report 14508859 (Version 2)
Quarter: 2018Q1

REPORT INFORMATION
  Report Type: Report from Study
  Country: FR (occurrence: FR)
  Receive Date: 20180209
  Receipt Date: 20180214
  Transmission Date: 20180509
  Serious: Yes (Death, Other)
  Sender: FDA-Public Use
  Company Number: FR-JAZZ-2018-FR-002306

PATIENT

DRUGS (1)
  1. DEFITELIO [Suspect]
     Active Substance: DEFIBROTIDE SODIUM
     Indication: PROPHYLAXIS
     Dosage: 24 MG/KG, QD
     Route: 042
     Dates: start: 20150306

REACTIONS (3)
  - Eyelid oedema [Unknown]
  - Acute myeloid leukaemia recurrent [Fatal]
  - Rash [Unknown]

NARRATIVE: CASE EVENT DATE: 20150126
